FAERS Safety Report 7472348-8 (Version None)
Quarter: 2011Q2

REPORT INFORMATION
  Report Type: 
  Country: None (occurrence: None)
  Receive Date: 20110511
  Receipt Date: 20110429
  Transmission Date: 20111010
  Serious: Yes (Other)
  Sender: FDA-Public Use
  Company Number: PHHY2011US22297

PATIENT
  Sex: Male
  Weight: 48.98 kg

DRUGS (1)
  1. EXJADE [Suspect]
     Indication: LYMPHOCYTIC LEUKAEMIA
     Dosage: 2125 MG, QD
     Route: 048
     Dates: start: 20100814

REACTIONS (2)
  - GRAFT VERSUS HOST DISEASE [None]
  - RENAL FAILURE [None]
